FAERS Safety Report 6200193-X (Version None)
Quarter: 2009Q2

REPORT INFORMATION
  Report Type: 
  Country: None (occurrence: None)
  Receive Date: 20090522
  Receipt Date: 20090512
  Transmission Date: 20091009
  Serious: Yes (Hospitalization, Other)
  Sender: FDA-Public Use
  Company Number: US-PFIZER INC-2009212837

PATIENT
  Sex: Male
  Weight: 72.562 kg

DRUGS (1)
  1. CHANTIX [Suspect]
     Indication: SMOKING CESSATION THERAPY
     Dosage: UNK
     Dates: start: 20090101

REACTIONS (4)
  - DEPRESSION [None]
  - LOSS OF CONSCIOUSNESS [None]
  - SUICIDAL IDEATION [None]
  - SUICIDE ATTEMPT [None]
